FAERS Safety Report 11695885 (Version 1)
Quarter: 2015Q4

REPORT INFORMATION
  Report Type: Spontaneous
  Country: US (occurrence: None)
  Receive Date: 20151103
  Receipt Date: 20151103
  Transmission Date: 20160304
  Serious: No
  Sender: FDA-Public Use
  Company Number: None

PATIENT
  Age: 77 Year
  Sex: Female
  Weight: 73.48 kg

DRUGS (1)
  1. JUBLIA [Suspect]
     Active Substance: EFINACONAZOLE
     Indication: ONYCHOMYCOSIS
     Dates: start: 20150127, end: 20150828

REACTIONS (4)
  - Skin exfoliation [None]
  - Blister [None]
  - Swelling [None]
  - Pain in extremity [None]

NARRATIVE: CASE EVENT DATE: 20150828
